FAERS Safety Report 6620261-8 (Version None)
Quarter: 2010Q1

REPORT INFORMATION
  Report Type: 
  Country: None (occurrence: None)
  Receive Date: 20100223
  Receipt Date: 20091125
  Transmission Date: 20100710
  Serious: No
  Sender: FDA-Public Use
  Company Number: 003486

PATIENT
  Sex: Female
  Weight: 59 kg

DRUGS (5)
  1. CIMZIA [Suspect]
     Indication: CROHN'S DISEASE
     Dosage: 400 MG 1X/MONTH SUBCUTANEOUS
     Route: 058
     Dates: start: 20090415
  2. ADVAIR DISKUS 100/50 [Concomitant]
  3. LORAZEPAM [Concomitant]
  4. PROPRANOLOL HYDROCHLORIDE [Concomitant]
  5. XOPENEX [Concomitant]

REACTIONS (4)
  - ABDOMINAL PAIN [None]
  - DIARRHOEA [None]
  - INJECTION SITE REACTION [None]
  - WHEEZING [None]
